FAERS Safety Report 8776669 (Version 1)
Quarter: 2012Q4

REPORT INFORMATION
  Report Type: 
  Country: ZA (occurrence: ZA)
  Receive Date: 20120911
  Receipt Date: 20120911
  Transmission Date: 20130627
  Serious: Yes (Hospitalization, Other)
  Sender: FDA-Public Use
  Company Number: ZA-NOVOPROD-359185

PATIENT
  Sex: Male
  Weight: 2.8 kg

DRUGS (2)
  1. NOVORAPID FLEXPEN [Suspect]
     Indication: PRODUCT USED FOR UNKNOWN INDICATION
     Dosage: UNK
     Route: 064
     Dates: start: 20110314
  2. PROTAPHANE FLEXPEN [Suspect]
     Indication: PRODUCT USED FOR UNKNOWN INDICATION
     Dosage: UNK
     Route: 064
     Dates: start: 20110314

REACTIONS (3)
  - Premature baby [Recovered/Resolved]
  - Jaundice [Recovered/Resolved]
  - Foetal exposure during pregnancy [Recovered/Resolved]
